FAERS Safety Report 17163786 (Version 2)
Quarter: 2020Q1

REPORT INFORMATION
  Report Type: Spontaneous
  Country: DE (occurrence: DE)
  Receive Date: 20191217
  Receipt Date: 20200110
  Transmission Date: 20200409
  Serious: Yes (Hospitalization)
  Sender: FDA-Public Use
  Company Number: NVSC2019DE066711

PATIENT
  Age: 60 Year
  Sex: Female
  Weight: 73 kg

DRUGS (11)
  1. FLUOROURACIL. [Suspect]
     Active Substance: FLUOROURACIL
     Indication: COLORECTAL CANCER METASTATIC
     Dosage: 5180 MG, CYCLIC ( QCY)
     Route: 042
     Dates: start: 20190814, end: 20190814
  2. OXALIPLATIN. [Suspect]
     Active Substance: OXALIPLATIN
     Indication: COLORECTAL CANCER METASTATIC
     Dosage: 1572 MG, CYCLIC (QCY)
     Route: 042
     Dates: start: 20190814, end: 20190814
  3. OXALIPLATIN. [Suspect]
     Active Substance: OXALIPLATIN
     Dosage: 1572 MG, CYCLIC (QCY)
     Route: 042
     Dates: start: 20191009, end: 20191009
  4. FLUOROURACIL. [Suspect]
     Active Substance: FLUOROURACIL
     Dosage: 5180 MG, CYCLIC ( QCY)
     Route: 042
     Dates: start: 20191009, end: 20191009
  5. AMLODIPINE [Concomitant]
     Active Substance: AMLODIPINE BESYLATE
     Indication: PRODUCT USED FOR UNKNOWN INDICATION
     Dosage: 5 MG, QD
     Route: 065
     Dates: start: 20190821
  6. LEUCOVORIN. [Suspect]
     Active Substance: LEUCOVORIN
     Indication: COLORECTAL CANCER METASTATIC
     Dosage: 647 MG, CYCLIC, (QCY)
     Route: 042
     Dates: start: 20190814, end: 20190814
  7. LEUCOVORIN. [Suspect]
     Active Substance: LEUCOVORIN
     Dosage: 647 MG, CYCLIC, ( QCY)
     Route: 042
     Dates: start: 20191009, end: 20191009
  8. CANDESARTAN. [Concomitant]
     Active Substance: CANDESARTAN
     Indication: PRODUCT USED FOR UNKNOWN INDICATION
     Dosage: 16 MG, QD
     Route: 065
     Dates: start: 2015
  9. AFLIBERCEPT [Suspect]
     Active Substance: AFLIBERCEPT
     Dosage: 300 MG, CYCLIC (QCY)
     Route: 042
     Dates: start: 20191009, end: 20191009
  10. AFLIBERCEPT [Suspect]
     Active Substance: AFLIBERCEPT
     Indication: COLORECTAL CANCER METASTATIC
     Dosage: 300 MG, CYCLIC (QCY)
     Route: 042
     Dates: start: 20190814, end: 20190814
  11. HCT [Concomitant]
     Active Substance: HYDROCHLOROTHIAZIDE
     Indication: PRODUCT USED FOR UNKNOWN INDICATION
     Dosage: 25 MG, QD
     Route: 065
     Dates: start: 20190827

REACTIONS (1)
  - Hypertension [Recovered/Resolved]

NARRATIVE: CASE EVENT DATE: 20191009
